FAERS Safety Report 8263398-2 (Version None)
Quarter: 2012Q2

REPORT INFORMATION
  Report Type: 
  Country: None (occurrence: None)
  Receive Date: 20120405
  Receipt Date: 20120402
  Transmission Date: 20120825
  Serious: Yes (Disabling)
  Sender: FDA-Public Use
  Company Number: US-PFIZER INC-2012046028

PATIENT
  Sex: Male
  Weight: 101.59 kg

DRUGS (12)
  1. NOVAMINE [Concomitant]
     Dosage: UNK
  2. AMLODIPINE/VALSARTAN [Concomitant]
     Dosage: UNK
  3. HYDROXYZINE [Concomitant]
     Dosage: UNK
  4. TOPAMAX [Concomitant]
     Dosage: UNK
  5. SINGULAIR [Concomitant]
     Dosage: UNK
  6. LIPITOR [Suspect]
     Indication: BLOOD CHOLESTEROL INCREASED
     Dosage: 80 MG, 1X/DAY
     Route: 048
     Dates: start: 20110301
  7. DIAZEPAM [Concomitant]
     Indication: HEADACHE
  8. METFORMIN [Concomitant]
     Dosage: UNK
  9. OMEPRAZOLE [Concomitant]
     Indication: GASTROOESOPHAGEAL REFLUX DISEASE
     Dosage: 40 MG, UNK
  10. DIAZEPAM [Concomitant]
     Indication: DIZZINESS
     Dosage: UNK
  11. NAPROXEN [Concomitant]
     Dosage: UNK
  12. INSULIN DETEMIR [Concomitant]
     Indication: DIABETES MELLITUS
     Dosage: UNK

REACTIONS (1)
  - VESTIBULAR DISORDER [None]
